FAERS Safety Report 12305572 (Version 3)
Quarter: 2016Q3

REPORT INFORMATION
  Report Type: Spontaneous
  Country: US (occurrence: US)
  Receive Date: 20160426
  Receipt Date: 20160721
  Transmission Date: 20161109
  Serious: Yes (Hospitalization)
  Sender: FDA-Public Use
  Company Number: US-NOVOPROD-488407

PATIENT
  Age: 52 Year
  Sex: Male
  Weight: 102.49 kg

DRUGS (4)
  1. LEVEMIR [Suspect]
     Active Substance: INSULIN DETEMIR
     Dosage: 30 U, QD
     Route: 058
  2. NOVOLOG [Suspect]
     Active Substance: INSULIN ASPART
     Dosage: 20 U, QD
     Route: 058
  3. NOVOLOG [Suspect]
     Active Substance: INSULIN ASPART
     Indication: DIABETES MELLITUS INADEQUATE CONTROL
     Dosage: UNK
     Route: 058
     Dates: start: 2003
  4. LEVEMIR [Suspect]
     Active Substance: INSULIN DETEMIR
     Indication: DIABETES MELLITUS INADEQUATE CONTROL
     Dosage: UNK
     Route: 058
     Dates: start: 2003

REACTIONS (4)
  - Staphylococcal infection [Unknown]
  - Blood glucose fluctuation [Not Recovered/Not Resolved]
  - Blood glucose increased [Unknown]
  - Device failure [Unknown]

NARRATIVE: CASE EVENT DATE: 2003
